FAERS Safety Report 6994560-4 (Version None)
Quarter: 2010Q3

REPORT INFORMATION
  Report Type: 
  Country: None (occurrence: None)
  Receive Date: 20100916
  Receipt Date: 20100916
  Transmission Date: 20110219
  Serious: Yes (Death, Hospitalization)
  Sender: FDA-Public Use
  Company Number: None

PATIENT
  Age: 43 Year
  Sex: Male
  Weight: 96 kg

DRUGS (1)
  1. TYGACIL [Suspect]
     Indication: STAPHYLOCOCCAL BACTERAEMIA
     Dosage: 100MG EVERY 24 HRS IV DRIP  (ORDERED THRU AUGUST 6)
     Route: 041
     Dates: start: 20100720, end: 20100804

REACTIONS (2)
  - CHEST PAIN [None]
  - INFUSION RELATED REACTION [None]
